FAERS Safety Report 7308162-3 (Version None)
Quarter: 2011Q1

REPORT INFORMATION
  Report Type: 
  Country: None (occurrence: None)
  Receive Date: 20110223
  Receipt Date: 20110222
  Transmission Date: 20110831
  Serious: Yes (Hospitalization)
  Sender: FDA-Public Use
  Company Number: DE-EISAI INC-E2020-08539-CLI-DE

PATIENT
  Age: 72 Year
  Sex: Female
  Weight: 66 kg

DRUGS (6)
  1. ARICEPT [Suspect]
     Route: 048
     Dates: start: 20091111
  2. ANTIHYPERTENSIVES [Concomitant]
  3. ARICEPT [Suspect]
     Indication: DEMENTIA
     Route: 048
     Dates: start: 20091009, end: 20091110
  4. CARDIAC THERAPEUTICS [Concomitant]
  5. GINKO BILOBA [Concomitant]
  6. DIURETICS [Concomitant]

REACTIONS (1)
  - OSTEOARTHRITIS [None]
